FAERS Safety Report 7476857-7 (Version None)
Quarter: 2011Q2

REPORT INFORMATION
  Report Type: 
  Country: None (occurrence: None)
  Receive Date: 20110512
  Receipt Date: 20110429
  Transmission Date: 20111010
  Serious: Yes (Other)
  Sender: FDA-Public Use
  Company Number: US-CELGENEUS-163-21880-11050257

PATIENT
  Age: 68 Year
  Sex: Male

DRUGS (7)
  1. VELCADE [Suspect]
     Route: 065
  2. CYCLOPHOSPHAMIDE [Concomitant]
     Route: 051
  3. MELPHALAN [Concomitant]
     Route: 051
  4. AMIFOSTINE [Concomitant]
     Route: 051
  5. FILGRASTIM [Concomitant]
     Route: 058
  6. REVLIMID [Suspect]
     Route: 048
  7. DEXAMETHASONE [Suspect]
     Route: 065

REACTIONS (1)
  - ACUTE GRAFT VERSUS HOST DISEASE IN INTESTINE [None]
